FAERS Safety Report 6136648-6 (Version None)
Quarter: 2009Q1

REPORT INFORMATION
  Report Type: 
  Country: None (occurrence: None)
  Receive Date: 20090330
  Receipt Date: 20090327
  Transmission Date: 20090719
  Serious: Yes (Disabling, Other)
  Sender: FDA-Public Use
  Company Number: B0552293A

PATIENT
  Age: 58 Year
  Sex: Male

DRUGS (17)
  1. ARTIST [Suspect]
     Indication: HYPERTENSION
     Dosage: 40MG PER DAY
     Route: 065
     Dates: start: 20050517, end: 20050905
  2. ISONIAZID [Suspect]
     Indication: TUBERCULOSIS
     Dosage: 300MG PER DAY
     Dates: start: 20050411
  3. RIFAMPICIN [Suspect]
     Indication: TUBERCULOSIS
     Dosage: 450MG PER DAY
     Dates: start: 20050411
  4. TEMOCAPRIL [Suspect]
     Indication: HYPERTENSION
  5. AMLODIPINE BESYLATE [Suspect]
     Dosage: 2UNIT PER DAY
     Dates: start: 20050316, end: 20050724
  6. ADALAT [Suspect]
     Indication: HYPERTENSION
     Dosage: 20MG TWICE PER DAY
     Route: 048
     Dates: start: 20050607, end: 20050628
  7. PYRAZINAMIDE [Suspect]
     Indication: TUBERCULOSIS
     Dosage: 450MG PER DAY
     Route: 048
     Dates: start: 20050413, end: 20050415
  8. ETHAMBUTOL HCL [Concomitant]
     Dates: start: 20050411
  9. PYDOXAL [Concomitant]
     Dates: start: 20050411, end: 20050724
  10. LONGES [Concomitant]
     Dates: start: 20050316, end: 20050724
  11. CALTAN [Concomitant]
     Dates: start: 20050324, end: 20050724
  12. POLARAMINE [Concomitant]
     Dates: start: 20050418, end: 20050724
  13. BUNAZOSIN [Concomitant]
     Dates: start: 20050331, end: 20050724
  14. RENIVACE [Concomitant]
     Dates: start: 20050706, end: 20050724
  15. DIOVAN [Concomitant]
     Dates: start: 20050628, end: 20050905
  16. APRESOLINE [Concomitant]
     Dates: start: 20050720, end: 20050724
  17. SELBEX [Concomitant]
     Dates: start: 20050421, end: 20050724

REACTIONS (5)
  - BLOOD PRESSURE INADEQUATELY CONTROLLED [None]
  - CEREBRAL INFARCTION [None]
  - DRUG INTERACTION [None]
  - GASTRITIS [None]
  - PRURITUS [None]
